FAERS Safety Report 13306501 (Version 2)
Quarter: 2017Q1

REPORT INFORMATION
  Report Type: Report from Study
  Country: None (occurrence: DM)
  Receive Date: 20170308
  Receipt Date: 20170330
  Transmission Date: 20170428
  Serious: Yes (Other)
  Sender: FDA-Public Use
  Company Number: DO-ABBVIE-17K-279-1895247-00

PATIENT
  Sex: Male
  Weight: 65.38 kg

DRUGS (1)
  1. HUMIRA [Suspect]
     Active Substance: ADALIMUMAB
     Indication: COLITIS ULCERATIVE
     Route: 058
     Dates: start: 20150101

REACTIONS (3)
  - Local swelling [Recovering/Resolving]
  - Erythema [Recovering/Resolving]
  - Pyoderma gangrenosum [Recovering/Resolving]
